FAERS Safety Report 7533837-0 (Version None)
Quarter: 2011Q2

REPORT INFORMATION
  Report Type: 
  Country: None (occurrence: None)
  Receive Date: 20110608
  Receipt Date: 20060524
  Transmission Date: 20111010
  Serious: Yes (Hospitalization)
  Sender: FDA-Public Use
  Company Number: PHHO2006PH08467

PATIENT
  Sex: Male

DRUGS (4)
  1. CORDARONE [Concomitant]
  2. LANOXIN [Concomitant]
  3. PLAVIX [Concomitant]
  4. DIOVAN HCT [Suspect]
     Indication: HYPERTENSION
     Dosage: 160/12.5 MG
     Route: 048
     Dates: start: 20050804

REACTIONS (3)
  - ASTHENIA [None]
  - GAIT DISTURBANCE [None]
  - GASTRIC ULCER [None]
